FAERS Safety Report 20775465 (Version 1)
Quarter: 2022Q2

REPORT INFORMATION
  Report Type: Spontaneous
  Country: CA (occurrence: CA)
  Receive Date: 20220502
  Receipt Date: 20220502
  Transmission Date: 20220721
  Serious: Yes (Other)
  Sender: FDA-Public Use
  Company Number: CA-NOVARTISPH-NVSC2022CA097825

PATIENT
  Age: 74 Year
  Sex: Male

DRUGS (5)
  1. CYCLOSPORINE [Suspect]
     Active Substance: CYCLOSPORINE
     Indication: Febrile neutropenia
     Dosage: 75 MG, BID
     Route: 065
  2. CYCLOSPORINE [Suspect]
     Active Substance: CYCLOSPORINE
     Dosage: 100 MG, BID
     Route: 065
  3. CYCLOSPORINE [Suspect]
     Active Substance: CYCLOSPORINE
     Dosage: 50 MG, BID
     Route: 065
  4. PREDNISONE [Concomitant]
     Active Substance: PREDNISONE
     Indication: Febrile neutropenia
     Dosage: 1 MG/KG, QD
     Route: 065
  5. ELTROMBOPAG [Concomitant]
     Active Substance: ELTROMBOPAG
     Indication: Thrombocytopenia
     Dosage: 75 MG, QD
     Route: 065

REACTIONS (3)
  - Renal failure [Unknown]
  - Drug ineffective [Unknown]
  - Product use in unapproved indication [Unknown]
